FAERS Safety Report 13376638 (Version 6)
Quarter: 2021Q1

REPORT INFORMATION
  Report Type: Report from Study
  Country: US (occurrence: US)
  Receive Date: 20170328
  Receipt Date: 20210314
  Transmission Date: 20210419
  Serious: Yes (Hospitalization, Disabling, Other)
  Sender: FDA-Public Use
  Company Number: US-SA-2016SA059465

PATIENT
  Age: 46 Year
  Sex: Female

DRUGS (1)
  1. ALEMTUZUMAB [Suspect]
     Active Substance: ALEMTUZUMAB
     Indication: MULTIPLE SCLEROSIS
     Dosage: 12 MG, QD
     Route: 041
     Dates: start: 20160229, end: 20160304

REACTIONS (16)
  - Dysarthria [Recovered/Resolved]
  - Urinary tract infection [Recovered/Resolved]
  - Increased appetite [Not Recovered/Not Resolved]
  - Arthralgia [Not Recovered/Not Resolved]
  - Bacterial vaginosis [Recovered/Resolved]
  - Headache [Not Recovered/Not Resolved]
  - Facial paralysis [Unknown]
  - Physical disability [Unknown]
  - Contusion [Recovering/Resolving]
  - Hypokinesia [Unknown]
  - Dyspnoea [Not Recovered/Not Resolved]
  - Hemiparesis [Not Recovered/Not Resolved]
  - Dysphagia [Unknown]
  - B-lymphocyte count decreased [Recovered/Resolved]
  - T-lymphocyte count decreased [Recovered/Resolved]
  - Rash pruritic [Recovered/Resolved]

NARRATIVE: CASE EVENT DATE: 2016
